FAERS Safety Report 12972767 (Version 1)
Quarter: 2016Q4

REPORT INFORMATION
  Report Type: Spontaneous
  Country: US (occurrence: US)
  Receive Date: 20161124
  Receipt Date: 20161124
  Transmission Date: 20170207
  Serious: Yes (Other)
  Sender: FDA-Public Use
  Company Number: US-THE MEDICINES COMPANY-US-MDCO-16-00046

PATIENT
  Age: 56 Year
  Sex: Male
  Weight: 77 kg

DRUGS (6)
  1. BIVALIRUDIN-SANDOZ [Suspect]
     Active Substance: BIVALIRUDIN
     Dosage: 1.57 MG/KG/HR
     Route: 041
  2. BIVALIRUDIN-SANDOZ [Suspect]
     Active Substance: BIVALIRUDIN
     Dosage: NOT REPORTED
     Route: 040
  3. BIVALIRUDIN-SANDOZ [Suspect]
     Active Substance: BIVALIRUDIN
     Dosage: 1.57 MG/KG/HR
     Route: 041
  4. BIVALIRUDIN-SANDOZ [Suspect]
     Active Substance: BIVALIRUDIN
     Indication: PERCUTANEOUS CORONARY INTERVENTION
     Route: 040
  5. BRILANTA [Concomitant]
     Indication: PRODUCT USED FOR UNKNOWN INDICATION
     Dosage: NOT REPORTED
  6. HEPARIN [Concomitant]
     Active Substance: HEPARIN SODIUM
     Indication: PRODUCT USED FOR UNKNOWN INDICATION
     Dosage: NOT REPORTED
     Route: 040

REACTIONS (1)
  - Vascular stent thrombosis [Recovered/Resolved]
